FAERS Safety Report 5894194-9 (Version None)
Quarter: 2008Q3

REPORT INFORMATION
  Report Type: 
  Country: None (occurrence: None)
  Receive Date: 20080922
  Receipt Date: 20080912
  Transmission Date: 20090109
  Serious: Yes (Hospitalization)
  Sender: FDA-Public Use
  Company Number: 2008AL010499

PATIENT
  Age: 91 Year
  Sex: Female

DRUGS (1)
  1. DIGOXIN [Suspect]
     Dosage: 0.125MG, PO
     Route: 048
     Dates: end: 20080417

REACTIONS (1)
  - PALPITATIONS [None]
